FAERS Safety Report 20150596 (Version 3)
Quarter: 2022Q1

REPORT INFORMATION
  Report Type: Spontaneous
  Country: US (occurrence: US)
  Receive Date: 20211206
  Receipt Date: 20220112
  Transmission Date: 20220423
  Serious: Yes (Hospitalization)
  Sender: FDA-Public Use
  Company Number: US-CELGENE-USA-20211108467

PATIENT
  Sex: Female
  Weight: 68.554 kg

DRUGS (1)
  1. REVLIMID [Suspect]
     Active Substance: LENALIDOMIDE
     Indication: Plasma cell myeloma
     Dosage: 10 MILLIGRAM
     Route: 048
     Dates: start: 202001

REACTIONS (2)
  - Respiratory distress [Recovered/Resolved with Sequelae]
  - Ophthalmic herpes zoster [Recovered/Resolved with Sequelae]
